FAERS Safety Report 8110978-0 (Version None)
Quarter: 2012Q1

REPORT INFORMATION
  Report Type: 
  Country: None (occurrence: None)
  Receive Date: 20120203
  Receipt Date: 20110121
  Transmission Date: 20120608
  Serious: No
  Sender: FDA-Public Use
  Company Number: US-GLAXOSMITHKLINE-A0908044A

PATIENT
  Age: 50 Year
  Sex: Female

DRUGS (6)
  1. LAMICTAL [Suspect]
     Indication: BIPOLAR DISORDER
     Dosage: 25MG PER DAY
     Route: 048
     Dates: start: 20110112
  2. KLONOPIN [Concomitant]
  3. KETOROLAC TROMETHAMINE [Concomitant]
  4. LEVOTHYROXINE SODIUM [Concomitant]
  5. ZANAFLEX [Concomitant]
  6. CRESTOR [Concomitant]

REACTIONS (4)
  - ACNE [None]
  - PRURITUS [None]
  - PRURITUS GENERALISED [None]
  - MYALGIA [None]
